FAERS Safety Report 10563761 (Version 1)
Quarter: 2014Q4

REPORT INFORMATION
  Report Type: Spontaneous
  Country: US (occurrence: US)
  Receive Date: 20141104
  Receipt Date: 20141104
  Transmission Date: 20150529
  Serious: No
  Sender: FDA-Public Use
  Company Number: US-GLAXOSMITHKLINE-US2014GSK015913

PATIENT
  Age: 25 Year
  Sex: Female

DRUGS (10)
  1. BIRTH CONTROL [Concomitant]
     Active Substance: UNSPECIFIED INGREDIENT
  2. VITAMIN C [Concomitant]
     Active Substance: ASCORBIC ACID
  3. BLISTEX [Suspect]
     Active Substance: BENZOCAINE
     Indication: ORAL HERPES
  4. HUMIRA [Concomitant]
     Active Substance: ADALIMUMAB
     Indication: CROHN^S DISEASE
  5. IRON SUPPLEMENT [Concomitant]
     Active Substance: IRON
  6. ABREVA [Suspect]
     Active Substance: DOCOSANOL
     Indication: ORAL HERPES
  7. BUDESONIDE. [Concomitant]
     Active Substance: BUDESONIDE
     Indication: CROHN^S DISEASE
     Dosage: 3.5 MG, TID
  8. B12 COMPLEX [Concomitant]
  9. GLUCOSAMINE [Concomitant]
     Active Substance: GLUCOSAMINE
  10. VITAMINS [Concomitant]
     Active Substance: VITAMINS

REACTIONS (1)
  - Drug ineffective [Unknown]

NARRATIVE: CASE EVENT DATE: 201409
